FAERS Safety Report 7611340-7 (Version None)
Quarter: 2011Q3

REPORT INFORMATION
  Report Type: 
  Country: None (occurrence: None)
  Receive Date: 20110715
  Receipt Date: 20110707
  Transmission Date: 20111222
  Serious: Yes (Hospitalization)
  Sender: FDA-Public Use
  Company Number: JP-AMGEN-JPNCT2011026635

PATIENT
  Age: 69 Year
  Sex: Male
  Weight: 57 kg

DRUGS (14)
  1. CLOBETASOL PROPIONATE [Concomitant]
     Dosage: UNK
     Route: 062
  2. HIRUDOID [Concomitant]
     Dosage: UNK
     Route: 062
  3. PANITUMUMAB [Suspect]
     Indication: COLORECTAL CANCER
     Dosage: 6 MG/KG, Q2WK
     Route: 041
     Dates: start: 20100727, end: 20110308
  4. FLUOROURACIL [Suspect]
     Indication: COLORECTAL CANCER
     Dosage: 2400 MG/M2, Q2WK
     Route: 041
     Dates: start: 20100727, end: 20110308
  5. LEUCOVORIN CALCIUM [Suspect]
     Indication: COLORECTAL CANCER
     Dosage: 200 MG/M2, Q2WK
     Route: 041
     Dates: start: 20100727, end: 20110308
  6. IRINOTECAN HCL [Suspect]
     Indication: COLORECTAL CANCER
     Route: 041
     Dates: start: 20110123, end: 20110308
  7. SHAKUYAKUKANZOUTOU [Concomitant]
     Dosage: UNK
     Route: 048
  8. EMEND [Concomitant]
     Dosage: UNK
     Route: 048
  9. CELECOXIB [Concomitant]
     Dosage: UNK
     Route: 048
  10. PROTECADIN [Concomitant]
     Dosage: UNK
     Route: 048
  11. MUCOSTA [Concomitant]
     Dosage: UNK
     Route: 048
  12. RAMELTEON [Concomitant]
     Dosage: UNK
     Route: 042
  13. DECADRON [Suspect]
     Dosage: UNK
     Route: 042
  14. OXALIPLATIN [Suspect]
     Indication: COLORECTAL CANCER
     Route: 041
     Dates: start: 20100727, end: 20110111

REACTIONS (6)
  - HEPATIC ENCEPHALOPATHY [None]
  - HYPOKALAEMIA [None]
  - DERMATITIS ACNEIFORM [None]
  - INFUSION RELATED REACTION [None]
  - STOMATITIS [None]
  - PARONYCHIA [None]
